FAERS Safety Report 5139745-7 (Version None)
Quarter: 2006Q4

REPORT INFORMATION
  Report Type: 
  Country: None (occurrence: None)
  Receive Date: 20061024
  Receipt Date: 20061013
  Transmission Date: 20070319
  Serious: Yes (Other)
  Sender: FDA-Public Use
  Company Number: FR-SHR-03-012760

PATIENT
  Age: 58 Year
  Sex: Female

DRUGS (1)
  1. FLUDARA [Suspect]
     Indication: WALDENSTROM'S MACROGLOBULINAEMIA
     Dosage: 1 CYCLE; MONTHLY X4 MONTHS, INTRAVENOUS
     Route: 042
     Dates: start: 20030401

REACTIONS (2)
  - MYELOFIBROSIS [None]
  - PANCYTOPENIA [None]
